FAERS Safety Report 5131622-0 (Version None)
Quarter: 2006Q4

REPORT INFORMATION
  Report Type: 
  Country: None (occurrence: None)
  Receive Date: 20061020
  Receipt Date: 20061018
  Transmission Date: 20070319
  Serious: Yes (Life-Threatening)
  Sender: FDA-Public Use
  Company Number: FR-BRISTOL-MYERS SQUIBB COMPANY-13546023

PATIENT
  Age: 26 Year
  Sex: Male

DRUGS (3)
  1. NIFLURIL CAPS 250 MG [Suspect]
     Indication: TONSILLITIS
     Route: 048
     Dates: start: 20060920
  2. AMOXICILLIN [Suspect]
     Indication: TONSILLITIS
     Route: 048
     Dates: start: 20060920
  3. THIOVALONE [Concomitant]

REACTIONS (2)
  - ANAPHYLACTIC SHOCK [None]
  - ANGIONEUROTIC OEDEMA [None]
